FAERS Safety Report 5113550-X (Version None)
Quarter: 2006Q3

REPORT INFORMATION
  Report Type: 
  Country: None (occurrence: None)
  Receive Date: 20060921
  Receipt Date: 20060921
  Transmission Date: 20061208
  Serious: Yes (Life-Threatening)
  Sender: FDA-Public Use
  Company Number: None

PATIENT
  Age: 66 Year
  Sex: Female
  Weight: 96 kg

DRUGS (1)
  1. CAPECITABINE (XELODA), 500MG, ROCHE LAB [Suspect]
     Indication: COLECTOMY
     Dosage: 2 GRAMS BID ORAL
     Route: 048
     Dates: start: 20060802, end: 20060811

REACTIONS (1)
  - ACUTE MYOCARDIAL INFARCTION [None]
